FAERS Safety Report 5910850-8 (Version None)
Quarter: 2008Q4

REPORT INFORMATION
  Report Type: 
  Country: None (occurrence: None)
  Receive Date: 20081006
  Receipt Date: 20081006
  Transmission Date: 20090506
  Serious: No
  Sender: FDA-Public Use
  Company Number: None

PATIENT
  Age: 41 Year
  Sex: Female
  Weight: 70.7611 kg

DRUGS (1)
  1. MERCAPTOPURINE [Suspect]
     Indication: CROHN'S DISEASE
     Dosage: 1 TABLET ONCE DAILY PO  (DURATION: FOR LIFE)
     Route: 048

REACTIONS (3)
  - FEELING ABNORMAL [None]
  - IMPAIRED WORK ABILITY [None]
  - MOOD SWINGS [None]
